FAERS Safety Report 8441500-7 (Version None)
Quarter: 2012Q2

REPORT INFORMATION
  Report Type: 
  Country: None (occurrence: None)
  Receive Date: 20120615
  Receipt Date: 20110923
  Transmission Date: 20120825
  Serious: No
  Sender: FDA-Public Use
  Company Number: US-NOVEN-11US003290

PATIENT
  Sex: Female
  Weight: 47.166 kg

DRUGS (2)
  1. DAYTRANA [Suspect]
     Indication: ATTENTION DEFICIT/HYPERACTIVITY DISORDER
     Dosage: 30 MG, QD FOR 8 HOURS
     Route: 062
     Dates: start: 20110701
  2. MIRALAX                            /00754501/ [Concomitant]
     Indication: CONSTIPATION
     Route: 048

REACTIONS (2)
  - ERYTHEMA [None]
  - PRURITUS [None]
